FAERS Safety Report 4925472-5 (Version None)
Quarter: 2006Q1

REPORT INFORMATION
  Report Type: 
  Country: None (occurrence: None)
  Receive Date: 20060228
  Receipt Date: 20050225
  Transmission Date: 20060701
  Serious: No
  Sender: FDA-Public Use
  Company Number: US-GLAXOSMITHKLINE-A0547384A

PATIENT
  Age: 37 Year
  Sex: Female

DRUGS (8)
  1. LAMICTAL [Suspect]
     Indication: BIPOLAR DISORDER
     Dosage: 200MG TWICE PER DAY
     Route: 048
  2. ABILIFY [Concomitant]
  3. TOPAMAX [Concomitant]
  4. ZYRTEC [Concomitant]
  5. PRILOSEC [Concomitant]
  6. ORTHO TRI-CYCLEN [Concomitant]
     Route: 065
  7. KLONOPIN [Concomitant]
  8. AMBIEN [Concomitant]
     Route: 048

REACTIONS (1)
  - OLIGOMENORRHOEA [None]
